FAERS Safety Report 6965942-1 (Version None)
Quarter: 2010Q3

REPORT INFORMATION
  Report Type: 
  Country: None (occurrence: None)
  Receive Date: 20100823
  Receipt Date: 20100624
  Transmission Date: 20110219
  Serious: No
  Sender: FDA-Public Use
  Company Number: 012520

PATIENT
  Sex: Female
  Weight: 95.4 kg

DRUGS (4)
  1. CIMZIA [Suspect]
     Indication: CROHN'S DISEASE
     Dosage: (400 MG 1X/MONTH SUBCUTANEOUS)
     Route: 058
     Dates: start: 20091015
  2. PENTASA [Concomitant]
  3. MERCAPTOPURINE [Concomitant]
  4. ANTIHYPERTENSIVES [Concomitant]

REACTIONS (2)
  - DRUG INEFFECTIVE [None]
  - FIBROMYALGIA [None]
